FAERS Safety Report 9620430 (Version 1)
Quarter: 2013Q4

REPORT INFORMATION
  Report Type: Spontaneous
  Country: US (occurrence: US)
  Receive Date: 20131015
  Receipt Date: 20131015
  Transmission Date: 20140711
  Serious: No
  Sender: FDA-Public Use
  Company Number: -SAAVPROD-BMS19018258

PATIENT
  Age: 53 Year
  Sex: Male

DRUGS (1)
  1. AVALIDE TABS 300MG/12.5MG [Suspect]
     Indication: HYPERTENSION
     Dosage: 1 DF: AVALIDE 300/12.5 MG TABS

REACTIONS (2)
  - Abdominal discomfort [Unknown]
  - Drug effect delayed [Unknown]
